FAERS Safety Report 5891772-8 (Version None)
Quarter: 2008Q3

REPORT INFORMATION
  Report Type: 
  Country: None (occurrence: None)
  Receive Date: 20080922
  Receipt Date: 20080918
  Transmission Date: 20090109
  Serious: Yes (Other)
  Sender: FDA-Public Use
  Company Number: GB-ASTRAZENECA-2008GB01763

PATIENT
  Age: 78 Year
  Sex: Female
  Weight: 74 kg

DRUGS (2)
  1. CRESTOR [Suspect]
     Indication: BLOOD CHOLESTEROL INCREASED
     Dosage: 5MG
     Route: 048
     Dates: start: 20070115
  2. LANSOPRAZOLE [Concomitant]
     Indication: GASTRITIS
     Dosage: 30MG
     Route: 048
     Dates: start: 20070101

REACTIONS (1)
  - HEPATIC NEOPLASM MALIGNANT RESECTABLE [None]
